FAERS Safety Report 7091512-3 (Version None)
Quarter: 2010Q4

REPORT INFORMATION
  Report Type: 
  Country: None (occurrence: None)
  Receive Date: 20101109
  Receipt Date: 20101105
  Transmission Date: 20110411
  Serious: Yes (Other)
  Sender: FDA-Public Use
  Company Number: AT-PFIZER INC-2010141232

PATIENT
  Sex: Female

DRUGS (1)
  1. SAYANA [Suspect]
     Dosage: 104 MG, EVERY 3 MONTHS
     Route: 058
     Dates: start: 20100101

REACTIONS (2)
  - INJECTION SITE ATROPHY [None]
  - INJECTION SITE NODULE [None]
